FAERS Safety Report 13245670 (Version 2)
Quarter: 2017Q1

REPORT INFORMATION
  Report Type: Spontaneous
  Country: BR (occurrence: BR)
  Receive Date: 20170217
  Receipt Date: 20170221
  Transmission Date: 20170428
  Serious: Yes (Death, Other)
  Sender: FDA-Public Use
  Company Number: BR-ORION CORPORATION ORION PHARMA-ENTC2017-0014

PATIENT
  Age: 87 Year
  Sex: Female
  Weight: 70 kg

DRUGS (2)
  1. STALEVO [Suspect]
     Active Substance: CARBIDOPA\ENTACAPONE\LEVODOPA
     Indication: PARKINSON^S DISEASE
     Dosage: STRENGTH: 100/25/200 MG (2 TABS IN MORNING, AFTERNOON AND NIGHT)
     Route: 048
  2. STALEVO [Suspect]
     Active Substance: CARBIDOPA\ENTACAPONE\LEVODOPA
     Dosage: STRENGTH: 100/25/200 MG
     Route: 048

REACTIONS (8)
  - Product colour issue [Unknown]
  - Memory impairment [Unknown]
  - Parkinson^s disease [Unknown]
  - Cardio-respiratory arrest [Fatal]
  - Hallucination, visual [Recovered/Resolved]
  - Product supply issue [Unknown]
  - Off label use [Unknown]
  - Product quality issue [Unknown]

NARRATIVE: CASE EVENT DATE: 20170209
